FAERS Safety Report 8592978-X (Version None)
Quarter: 2012Q3

REPORT INFORMATION
  Report Type: 
  Country: None (occurrence: None)
  Receive Date: 20120814
  Receipt Date: 19900208
  Transmission Date: 20120928
  Serious: Yes (Hospitalization)
  Sender: FDA-Public Use
  Company Number: US-ROCHE-1099269

PATIENT
  Age: 53 Year
  Sex: Male

DRUGS (1)
  1. ACTIVASE [Suspect]
     Indication: ACUTE MYOCARDIAL INFARCTION
     Dates: start: 19891229

REACTIONS (2)
  - ELECTROCARDIOGRAM ST SEGMENT ABNORMAL [None]
  - PAIN [None]
